FAERS Safety Report 21849620 (Version 1)
Quarter: 2023Q1

REPORT INFORMATION
  Report Type: Report from Study
  Country: US (occurrence: US)
  Receive Date: 20230111
  Receipt Date: 20230111
  Transmission Date: 20230417
  Serious: Yes (Hospitalization, Other)
  Sender: FDA-Public Use
  Company Number: US-TAKEDA-2022TUS065734

PATIENT
  Sex: Female
  Weight: 87.07 kg

DRUGS (29)
  1. LANADELUMAB [Suspect]
     Active Substance: LANADELUMAB
     Indication: Immune system disorder
     Dosage: 300 MILLIGRAM, Q2WEEKS
     Route: 058
     Dates: start: 20220219
  2. AMLODIPINE BESYLATE [Concomitant]
     Active Substance: AMLODIPINE BESYLATE
  3. METAXALONE [Concomitant]
     Active Substance: METAXALONE
  4. RESTASIS [Concomitant]
     Active Substance: CYCLOSPORINE
  5. BIFIDOBACTERIUM ANIMALIS LACTIS\LACTOBACILLUS ACIDOPHILUS [Concomitant]
     Active Substance: BIFIDOBACTERIUM ANIMALIS LACTIS\LACTOBACILLUS ACIDOPHILUS
  6. CRANBERRY [Concomitant]
     Active Substance: CRANBERRY
  7. PLAQUENIL [Concomitant]
     Active Substance: HYDROXYCHLOROQUINE SULFATE
  8. Ponaris [Concomitant]
  9. ZYRTEC [Concomitant]
     Active Substance: CETIRIZINE HYDROCHLORIDE
  10. AZELASTINE HYDROCHLORIDE [Concomitant]
     Active Substance: AZELASTINE HYDROCHLORIDE
  11. PRILOSEC [Concomitant]
     Active Substance: OMEPRAZOLE MAGNESIUM
  12. SALAGEN [Concomitant]
     Active Substance: PILOCARPINE HYDROCHLORIDE
  13. SINGULAIR [Concomitant]
     Active Substance: MONTELUKAST SODIUM
  14. FAMOTIDINE [Concomitant]
     Active Substance: FAMOTIDINE
  15. ICATIBANT [Concomitant]
     Active Substance: ICATIBANT ACETATE
  16. GABAPENTIN [Concomitant]
     Active Substance: GABAPENTIN
  17. LORAZEPAM [Concomitant]
     Active Substance: LORAZEPAM
  18. SYNTHROID [Concomitant]
     Active Substance: LEVOTHYROXINE SODIUM
  19. ONDANSETRON [Concomitant]
     Active Substance: ONDANSETRON
  20. HYDROXYZINE HYDROCHLORIDE [Concomitant]
     Active Substance: HYDROXYZINE HYDROCHLORIDE
  21. NABUMETONE [Concomitant]
     Active Substance: NABUMETONE
  22. RUCONEST [Concomitant]
     Active Substance: HUMAN C1-ESTERASE INHIBITOR
  23. MAGNESIUM [Concomitant]
     Active Substance: MAGNESIUM
  24. MODERNA COVID-19 VACCINE [Concomitant]
     Active Substance: ELASOMERAN
  25. LEXAPRO [Concomitant]
     Active Substance: ESCITALOPRAM OXALATE
  26. LIPITOR [Concomitant]
     Active Substance: ATORVASTATIN CALCIUM
  27. MUCINEX [Concomitant]
     Active Substance: GUAIFENESIN
  28. CYANOCOBALAMIN\DEXPANTHENOL\NIACINAMIDE\PYRIDOXINE HYDROCHLORIDE\RIBOF [Concomitant]
     Active Substance: CYANOCOBALAMIN\DEXPANTHENOL\NIACINAMIDE\PYRIDOXINE HYDROCHLORIDE\RIBOFLAVIN 5^-PHOSPHATE SODIUM\THIA
  29. BENICAR [Concomitant]
     Active Substance: OLMESARTAN MEDOXOMIL

REACTIONS (3)
  - Postoperative wound infection [Unknown]
  - Sinusitis [Unknown]
  - Hereditary angioedema [Unknown]
